FAERS Safety Report 8807498 (Version 1)
Quarter: 2012Q4

REPORT INFORMATION
  Report Type: 
  Country: US (occurrence: US)
  Receive Date: 20120925
  Receipt Date: 20120925
  Transmission Date: 20130627
  Serious: Yes (Hospitalization, Other)
  Sender: FDA-Public Use
  Company Number: US-INCYTE CORPORATION-2012IN001531

PATIENT
  Age: 52 Year
  Sex: Male
  Weight: 80.2 kg

DRUGS (1)
  1. JAKAFI [Suspect]
     Indication: MYELOFIBROSIS
     Dosage: 15 mg, bid
     Route: 048
     Dates: start: 20120116, end: 20120801

REACTIONS (4)
  - Gouty arthritis [Unknown]
  - Acute myeloid leukaemia [Unknown]
  - Hyperuricaemia [Unknown]
  - Drug ineffective [Unknown]
